FAERS Safety Report 22192268 (Version 1)
Quarter: 2023Q2

REPORT INFORMATION
  Report Type: Spontaneous
  Country: FR (occurrence: FR)
  Receive Date: 20230410
  Receipt Date: 20230410
  Transmission Date: 20230722
  Serious: Yes (Other)
  Sender: FDA-Public Use
  Company Number: None

PATIENT
  Sex: Female

DRUGS (2)
  1. SILDENAFIL [Suspect]
     Active Substance: SILDENAFIL
     Indication: Weight decreased
     Dosage: 1 SACHET OF TREX TEA PER DAY
     Route: 048
     Dates: start: 202212
  2. SIBUTRAMINE HYDROCHLORIDE MONOHYDRATE [Suspect]
     Active Substance: SIBUTRAMINE HYDROCHLORIDE
     Indication: Weight decreased
     Dosage: 1 SACHET OF TREX TEA PER DAY
     Route: 048
     Dates: start: 202212

REACTIONS (4)
  - Constipation [Unknown]
  - Hypertension [Unknown]
  - Headache [Unknown]
  - Epistaxis [Unknown]

NARRATIVE: CASE EVENT DATE: 20221201
